FAERS Safety Report 6222332-7 (Version None)
Quarter: 2009Q2

REPORT INFORMATION
  Report Type: 
  Country: None (occurrence: None)
  Receive Date: 20090611
  Receipt Date: 20090603
  Transmission Date: 20091009
  Serious: Yes (Other)
  Sender: FDA-Public Use
  Company Number: CA-BAYER-200922711NA

PATIENT
  Sex: Female

DRUGS (2)
  1. MIRENA [Suspect]
     Indication: DRUG USE FOR UNKNOWN INDICATION
     Dosage: CONTINUOUS
     Route: 015
     Dates: start: 20090401
  2. INH [Concomitant]
     Indication: TUBERCULOSIS
     Dates: start: 20090301

REACTIONS (1)
  - LIVER FUNCTION TEST ABNORMAL [None]
